FAERS Safety Report 5979273-X (Version None)
Quarter: 2008Q4

REPORT INFORMATION
  Report Type: 
  Country: None (occurrence: None)
  Receive Date: 20081204
  Receipt Date: 20081030
  Transmission Date: 20090506
  Serious: No
  Sender: FDA-Public Use
  Company Number: US-ABBOTT-08P-163-0484966-00

PATIENT
  Sex: Female

DRUGS (1)
  1. TRICOR [Suspect]
     Indication: BLOOD TRIGLYCERIDES
     Route: 048
     Dates: start: 20080901, end: 20081001

REACTIONS (4)
  - ASTHENOPIA [None]
  - HEADACHE [None]
  - SINUSITIS [None]
  - VISUAL IMPAIRMENT [None]
